FAERS Safety Report 16410766 (Version 1)
Quarter: 2019Q2

REPORT INFORMATION
  Report Type: Spontaneous
  Country: US (occurrence: US)
  Receive Date: 20190610
  Receipt Date: 20190610
  Transmission Date: 20190711
  Serious: Yes (Death, Life-Threatening, Hospitalization, Other)
  Sender: FDA-Public Use
  Company Number: US-PURACAP PHARMACEUTICAL LLC-2019EPC00152

PATIENT
  Age: 37 Year
  Sex: Female

DRUGS (2)
  1. ALCOHOL. [Concomitant]
     Active Substance: ALCOHOL
     Route: 048
  2. BENZONATATE. [Suspect]
     Active Substance: BENZONATATE
     Dosage: LESS THAN 30 CAPSULES, ONCE
     Route: 048

REACTIONS (9)
  - Cardiac arrest [Recovered/Resolved]
  - Brain injury [Fatal]
  - Disseminated intravascular coagulation [Not Recovered/Not Resolved]
  - Respiratory acidosis [Not Recovered/Not Resolved]
  - Intentional overdose [Fatal]
  - Hypotension [Not Recovered/Not Resolved]
  - Metabolic acidosis [Not Recovered/Not Resolved]
  - Seizure [Recovered/Resolved]
  - Unresponsive to stimuli [Not Recovered/Not Resolved]
